FAERS Safety Report 22094363 (Version 1)
Quarter: 2023Q1

REPORT INFORMATION
  Report Type: Spontaneous
  Country: US (occurrence: None)
  Receive Date: 20230314
  Receipt Date: 20230314
  Transmission Date: 20230418
  Serious: Yes (Other)
  Sender: FDA-Public Use
  Company Number: 2023A056430

PATIENT
  Age: 23641 Day
  Sex: Female
  Weight: 72.6 kg

DRUGS (47)
  1. PRILOSEC [Suspect]
     Active Substance: OMEPRAZOLE MAGNESIUM
     Indication: Gastrooesophageal reflux disease
     Route: 048
     Dates: start: 2015, end: 2016
  2. PRILOSEC [Suspect]
     Active Substance: OMEPRAZOLE MAGNESIUM
     Indication: Gastrooesophageal reflux disease
     Dosage: GENERIC
     Dates: start: 2016, end: 2021
  3. ESOMEPRAZOLE [Suspect]
     Active Substance: ESOMEPRAZOLE
     Indication: Gastrooesophageal reflux disease
     Dosage: GENERIC
     Dates: start: 2022
  4. PREVACID [Suspect]
     Active Substance: LANSOPRAZOLE
     Indication: Gastrooesophageal reflux disease
     Dates: start: 2015, end: 2016
  5. OXYCODONE HYDROCHLORIDE [Concomitant]
     Active Substance: OXYCODONE HYDROCHLORIDE
  6. CALCIUM [Concomitant]
     Active Substance: CALCIUM
  7. FERROUS SULFATE [Concomitant]
     Active Substance: FERROUS SULFATE
  8. TYLENOL [Concomitant]
     Active Substance: ACETAMINOPHEN
  9. TRIAMCINOLONE [Concomitant]
     Active Substance: TRIAMCINOLONE
  10. GLYXAMBI [Concomitant]
     Active Substance: EMPAGLIFLOZIN\LINAGLIPTIN
  11. VASCEPA [Concomitant]
     Active Substance: ICOSAPENT ETHYL
  12. GLIMEPIRIDE [Concomitant]
     Active Substance: GLIMEPIRIDE
  13. HYDROMORPHONE HYDROCHLORIDE [Concomitant]
     Active Substance: HYDROMORPHONE HYDROCHLORIDE
  14. TIZANIDINE [Concomitant]
     Active Substance: TIZANIDINE
  15. POLYETHYLENE GLYCOL [Concomitant]
     Active Substance: POLYETHYLENE GLYCOL
  16. FUROSEMIDE [Concomitant]
     Active Substance: FUROSEMIDE
  17. CEFDINIR [Concomitant]
     Active Substance: CEFDINIR
  18. CLONIDINE [Concomitant]
     Active Substance: CLONIDINE
  19. REGLAN [Concomitant]
     Active Substance: METOCLOPRAMIDE HYDROCHLORIDE
  20. DILAUDID [Concomitant]
     Active Substance: HYDROMORPHONE HYDROCHLORIDE
  21. CYMBALTA [Concomitant]
     Active Substance: DULOXETINE HYDROCHLORIDE
  22. SEROQUEL [Concomitant]
     Active Substance: QUETIAPINE FUMARATE
  23. GENTAMICIN [Concomitant]
     Active Substance: GENTAMICIN
  24. ZOLOFT [Concomitant]
     Active Substance: SERTRALINE HYDROCHLORIDE
  25. FLUVIRIN NOS [Concomitant]
     Active Substance: INFLUENZA VIRUS VACCINE
  26. LYRICA [Concomitant]
     Active Substance: PREGABALIN
  27. GABAPENTIN [Concomitant]
     Active Substance: GABAPENTIN
  28. ATENOLOL [Concomitant]
     Active Substance: ATENOLOL
  29. AUGMENTIN [Concomitant]
     Active Substance: AMOXICILLIN\CLAVULANATE POTASSIUM
  30. AMLODIPINE BESYLATE [Concomitant]
     Active Substance: AMLODIPINE BESYLATE
  31. PREDNISONE [Concomitant]
     Active Substance: PREDNISONE
  32. PREVNAR [Concomitant]
     Active Substance: PNEUMOCOCCAL 7-VALENT CONJUGATE VACCINE (DIPHTHERIA CRM197 PROTEIN)
  33. NITROFURANTOIN [Concomitant]
     Active Substance: NITROFURANTOIN
  34. FENTANYL [Concomitant]
     Active Substance: FENTANYL
  35. VITAMIN D3 [Concomitant]
     Active Substance: CHOLECALCIFEROL
  36. HYDRALAZINE [Concomitant]
     Active Substance: HYDRALAZINE HYDROCHLORIDE
  37. ONDANSETRON [Concomitant]
     Active Substance: ONDANSETRON
  38. HEPARIN [Concomitant]
     Active Substance: HEPARIN SODIUM
  39. LISINOPRIL [Concomitant]
     Active Substance: LISINOPRIL
  40. NARCAN [Concomitant]
     Active Substance: NALOXONE HYDROCHLORIDE
  41. ACETAMINOPHEN AND CODEINE [Concomitant]
     Active Substance: ACETAMINOPHEN\CODEINE PHOSPHATE
  42. SHINGRIX [Concomitant]
     Active Substance: RECOMBINANT VARICELLA ZOSTER VIRUS (VZV) GLYCOPROTEIN E
  43. VRAYLAR [Concomitant]
     Active Substance: CARIPRAZINE
  44. METHADONE [Concomitant]
     Active Substance: METHADONE HYDROCHLORIDE
  45. DICLOFENAC [Concomitant]
     Active Substance: DICLOFENAC
  46. ACETAMINOPHEN\OXYCODONE HYDROCHLORIDE [Concomitant]
     Active Substance: ACETAMINOPHEN\OXYCODONE HYDROCHLORIDE
  47. BACLOFEN [Concomitant]
     Active Substance: BACLOFEN

REACTIONS (6)
  - Chronic kidney disease [Not Recovered/Not Resolved]
  - Acute kidney injury [Not Recovered/Not Resolved]
  - Chronic kidney disease-mineral and bone disorder [Unknown]
  - Nephrogenic anaemia [Unknown]
  - Renal tubular necrosis [Unknown]
  - Proteinuria [Unknown]

NARRATIVE: CASE EVENT DATE: 20160214
